FAERS Safety Report 8576532-1 (Version None)
Quarter: 2012Q3

REPORT INFORMATION
  Report Type: 
  Country: None (occurrence: None)
  Receive Date: 20120807
  Receipt Date: 20120719
  Transmission Date: 20120928
  Serious: Yes (Other)
  Sender: FDA-Public Use
  Company Number: AU-ROCHE-1061307

PATIENT
  Sex: Female

DRUGS (4)
  1. ACTEMRA [Suspect]
     Indication: RHEUMATOID ARTHRITIS
     Dates: start: 20101104
  2. PREDNISOLONE [Concomitant]
  3. ACTEMRA [Suspect]
     Dates: start: 20120321
  4. METHOTREXATE [Concomitant]

REACTIONS (6)
  - HAEMATOMA [None]
  - PERIORBITAL HAEMATOMA [None]
  - CELLULITIS [None]
  - CONJUNCTIVAL HAEMORRHAGE [None]
  - EYE SWELLING [None]
  - FALL [None]
